FAERS Safety Report 20151072 (Version 17)
Quarter: 2022Q3

REPORT INFORMATION
  Report Type: Report from Study
  Country: CN (occurrence: None)
  Receive Date: 20211206
  Receipt Date: 20220817
  Transmission Date: 20221026
  Serious: Yes (Hospitalization)
  Sender: FDA-Public Use
  Company Number: CN-ROCHE-2960842

PATIENT
  Age: 76 Year
  Sex: Male
  Weight: 37 kg

DRUGS (111)
  1. TIRAGOLUMAB [Suspect]
     Active Substance: TIRAGOLUMAB
     Indication: Oesophageal squamous cell carcinoma recurrent
     Dosage: ON 26/OCT/2021, HE RECEIVED MOST RECENT DOSE OF STUDY DRUG PRIOR TO AE/ SAE
     Route: 042
     Dates: start: 20211026
  2. ATEZOLIZUMAB [Suspect]
     Active Substance: ATEZOLIZUMAB
     Indication: Oesophageal squamous cell carcinoma recurrent
     Dosage: ON 26/OCT/2021, HE RECEIVED MOST RECENT DOSE OF STUDY DRUG PRIOR TO AE AND SAE
     Route: 041
     Dates: start: 20211026
  3. PACLITAXEL [Suspect]
     Active Substance: PACLITAXEL
     Indication: Oesophageal squamous cell carcinoma recurrent
     Dosage: ON 26/OCT/2021, HE RECEIVED MOST RECENT DOSE (220 MG) OF STUDY DRUG PRIOR TO AE/ SAE
     Route: 042
     Dates: start: 20211026
  4. CISPLATIN [Suspect]
     Active Substance: CISPLATIN
     Indication: Oesophageal squamous cell carcinoma recurrent
     Dosage: ON 26/OCT/2021, HE RECEIVED MOST RECENT DOSE (85 MG) OF STUDY DRUG PRIOR TO AE/ SAE
     Route: 042
     Dates: start: 20211026
  5. DEXAMETHASONE [Concomitant]
     Active Substance: DEXAMETHASONE
     Indication: Hypersensitivity
     Dosage: DRUG DOSE FIRST ADMINISTERED IS 14 TABLET
     Route: 048
     Dates: start: 20211025, end: 20211026
  6. DEXAMETHASONE [Concomitant]
     Active Substance: DEXAMETHASONE
     Route: 042
     Dates: start: 20211129, end: 20211129
  7. DEXTROSE [Concomitant]
     Active Substance: DEXTROSE
     Indication: Dehydration
     Dates: start: 20211025, end: 20211028
  8. CIMETIDINE [Concomitant]
     Active Substance: CIMETIDINE
     Indication: Hypersensitivity
     Dates: start: 20211026, end: 20211026
  9. CIMETIDINE [Concomitant]
     Active Substance: CIMETIDINE
     Dates: start: 20211120, end: 20211120
  10. ONDANSETRON HYDROCHLORIDE [Concomitant]
     Active Substance: ONDANSETRON HYDROCHLORIDE
     Indication: Prophylaxis of nausea and vomiting
     Dates: start: 20211026, end: 20211028
  11. ONDANSETRON HYDROCHLORIDE [Concomitant]
     Active Substance: ONDANSETRON HYDROCHLORIDE
     Dates: start: 20211119, end: 20211124
  12. FILGRASTIM [Concomitant]
     Active Substance: FILGRASTIM
     Route: 030
     Dates: start: 20211102, end: 20211103
  13. FILGRASTIM [Concomitant]
     Active Substance: FILGRASTIM
     Route: 030
     Dates: start: 20211104, end: 20211105
  14. FILGRASTIM [Concomitant]
     Active Substance: FILGRASTIM
     Dates: start: 20211203, end: 20211205
  15. MANNITOL [Concomitant]
     Active Substance: MANNITOL
     Indication: Dehydration
     Dates: start: 20211025, end: 20211025
  16. SODIUM CHLORIDE [Concomitant]
     Active Substance: SODIUM CHLORIDE
     Indication: Dehydration
     Dosage: 0.9 %
     Route: 042
     Dates: start: 20211025, end: 20211028
  17. SODIUM CHLORIDE [Concomitant]
     Active Substance: SODIUM CHLORIDE
     Indication: Nutritional supplementation
     Route: 042
     Dates: start: 20211121, end: 20211123
  18. SODIUM CHLORIDE [Concomitant]
     Active Substance: SODIUM CHLORIDE
     Route: 042
     Dates: start: 20211129, end: 20211223
  19. SODIUM CHLORIDE [Concomitant]
     Active Substance: SODIUM CHLORIDE
     Route: 042
     Dates: start: 20211203, end: 20211223
  20. SODIUM CHLORIDE [Concomitant]
     Active Substance: SODIUM CHLORIDE
     Route: 042
     Dates: start: 20211129, end: 20211129
  21. SODIUM CHLORIDE [Concomitant]
     Active Substance: SODIUM CHLORIDE
     Route: 042
     Dates: start: 20211203, end: 20211203
  22. SODIUM CHLORIDE [Concomitant]
     Active Substance: SODIUM CHLORIDE
     Route: 042
     Dates: start: 20211116, end: 20211118
  23. SODIUM CHLORIDE [Concomitant]
     Active Substance: SODIUM CHLORIDE
     Route: 042
     Dates: start: 20211119, end: 20211124
  24. SODIUM CHLORIDE [Concomitant]
     Active Substance: SODIUM CHLORIDE
     Dates: start: 20211119, end: 20211121
  25. SODIUM CHLORIDE [Concomitant]
     Active Substance: SODIUM CHLORIDE
     Dates: start: 20211029, end: 20211106
  26. SODIUM CHLORIDE [Concomitant]
     Active Substance: SODIUM CHLORIDE
     Dates: start: 20211028, end: 20211028
  27. RANITIDINE HYDROCHLORIDE [Concomitant]
     Active Substance: RANITIDINE HYDROCHLORIDE
     Dates: start: 20211026, end: 20211028
  28. RANITIDINE HYDROCHLORIDE [Concomitant]
     Active Substance: RANITIDINE HYDROCHLORIDE
     Dates: start: 20211119, end: 20211124
  29. METOCLOPRAMIDE HYDROCLORIDE [Concomitant]
     Indication: Prophylaxis of nausea and vomiting
     Dates: start: 20211026, end: 20211028
  30. METOCLOPRAMIDE HYDROCLORIDE [Concomitant]
     Dates: start: 20211119, end: 20211124
  31. MIRTAZAPINE [Concomitant]
     Active Substance: MIRTAZAPINE
     Indication: Prophylaxis of nausea and vomiting
     Dates: start: 20211026, end: 20211028
  32. MAGNESIUM SULFATE [Concomitant]
     Active Substance: MAGNESIUM SULFATE
     Indication: Nutritional supplementation
     Route: 042
     Dates: start: 20211129, end: 20211223
  33. MAGNESIUM SULFATE [Concomitant]
     Active Substance: MAGNESIUM SULFATE
     Route: 042
     Dates: start: 20211203, end: 20211223
  34. DEXAMETHASONE SODIUM PHOSPHATE [Concomitant]
     Active Substance: DEXAMETHASONE SODIUM PHOSPHATE
     Indication: Hypersensitivity
     Route: 030
     Dates: start: 20211119, end: 20211124
  35. DEXAMETHASONE SODIUM PHOSPHATE [Concomitant]
     Active Substance: DEXAMETHASONE SODIUM PHOSPHATE
     Route: 042
     Dates: start: 20211129, end: 20211201
  36. DEXAMETHASONE SODIUM PHOSPHATE [Concomitant]
     Active Substance: DEXAMETHASONE SODIUM PHOSPHATE
     Route: 042
     Dates: start: 20211130, end: 20211130
  37. DEXAMETHASONE SODIUM PHOSPHATE [Concomitant]
     Active Substance: DEXAMETHASONE SODIUM PHOSPHATE
     Route: 042
     Dates: start: 20211201, end: 20211201
  38. METOCLOPRAMIDE HYDROCHLORIDE [Concomitant]
     Active Substance: METOCLOPRAMIDE HYDROCHLORIDE
     Dates: start: 20211119, end: 20211124
  39. DEXTROSE [Concomitant]
     Active Substance: DEXTROSE
     Indication: Nutritional supplementation
     Dates: start: 20211120, end: 20211121
  40. DEXTROSE [Concomitant]
     Active Substance: DEXTROSE
     Route: 042
     Dates: start: 20211129, end: 20211203
  41. DEXTROSE [Concomitant]
     Active Substance: DEXTROSE
     Route: 042
     Dates: start: 20211203, end: 20211223
  42. DEXTROSE [Concomitant]
     Active Substance: DEXTROSE
     Route: 042
     Dates: start: 20211119, end: 20211124
  43. DEXTROSE [Concomitant]
     Active Substance: DEXTROSE
     Dates: start: 20211030, end: 20211030
  44. DEXTROSE [Concomitant]
     Active Substance: DEXTROSE
     Route: 042
     Dates: start: 20211104, end: 20211106
  45. DEXTROSE [Concomitant]
     Active Substance: DEXTROSE
     Dates: start: 20211119, end: 20211121
  46. ALANYL GLUTAMINE [Concomitant]
     Active Substance: ALANYL GLUTAMINE
     Indication: Nutritional supplementation
     Route: 042
     Dates: start: 20211121, end: 20211123
  47. ALANYL GLUTAMINE [Concomitant]
     Active Substance: ALANYL GLUTAMINE
     Route: 042
     Dates: start: 20211129, end: 20211223
  48. ALANYL GLUTAMINE [Concomitant]
     Active Substance: ALANYL GLUTAMINE
     Route: 042
     Dates: start: 20211203, end: 20211223
  49. ALANYL GLUTAMINE [Concomitant]
     Active Substance: ALANYL GLUTAMINE
     Route: 042
     Dates: start: 20211203, end: 20211203
  50. ALANYL GLUTAMINE [Concomitant]
     Active Substance: ALANYL GLUTAMINE
     Route: 042
     Dates: start: 20211116, end: 20211118
  51. ALANYL GLUTAMINE [Concomitant]
     Active Substance: ALANYL GLUTAMINE
     Dates: start: 20211028, end: 20211028
  52. POTASSIUM CHLORIDE [Concomitant]
     Active Substance: POTASSIUM CHLORIDE
     Indication: Nutritional supplementation
     Route: 042
     Dates: start: 20211121, end: 20211123
  53. POTASSIUM CHLORIDE [Concomitant]
     Active Substance: POTASSIUM CHLORIDE
     Route: 042
     Dates: start: 20211129, end: 20211203
  54. POTASSIUM CHLORIDE [Concomitant]
     Active Substance: POTASSIUM CHLORIDE
     Route: 048
     Dates: start: 20211204, end: 20211205
  55. POTASSIUM CHLORIDE [Concomitant]
     Active Substance: POTASSIUM CHLORIDE
     Route: 042
     Dates: start: 20211203, end: 20211223
  56. POTASSIUM CHLORIDE [Concomitant]
     Active Substance: POTASSIUM CHLORIDE
     Route: 042
     Dates: start: 20211129, end: 20211129
  57. POTASSIUM CHLORIDE [Concomitant]
     Active Substance: POTASSIUM CHLORIDE
     Route: 042
     Dates: start: 20211203, end: 20211203
  58. POTASSIUM CHLORIDE [Concomitant]
     Active Substance: POTASSIUM CHLORIDE
     Route: 042
     Dates: start: 20211116, end: 20211118
  59. POTASSIUM CHLORIDE [Concomitant]
     Active Substance: POTASSIUM CHLORIDE
     Route: 042
     Dates: start: 20211029, end: 20211106
  60. POTASSIUM CHLORIDE [Concomitant]
     Active Substance: POTASSIUM CHLORIDE
     Dates: start: 20211028, end: 20211028
  61. HEPARIN SODIUM [Concomitant]
     Active Substance: HEPARIN SODIUM
     Dates: start: 20211117, end: 20211117
  62. LIDOCAINE HYDROCHLORIDE [Concomitant]
     Active Substance: LIDOCAINE HYDROCHLORIDE
     Indication: Local anaesthesia
     Dates: start: 20211117, end: 20211117
  63. DIPHENHYDRAMINE HYDROCHLORIDE [Concomitant]
     Active Substance: DIPHENHYDRAMINE HYDROCHLORIDE
     Indication: Vomiting
     Dates: start: 20211120, end: 20211120
  64. DIPHENHYDRAMINE HYDROCHLORIDE [Concomitant]
     Active Substance: DIPHENHYDRAMINE HYDROCHLORIDE
     Dates: start: 20211026, end: 20211026
  65. FOSAPREPITANT DIMEGLUMINE [Concomitant]
     Active Substance: FOSAPREPITANT DIMEGLUMINE
     Indication: Prophylaxis of nausea and vomiting
     Dates: start: 20211120, end: 20211120
  66. FOSAPREPITANT DIMEGLUMINE [Concomitant]
     Active Substance: FOSAPREPITANT DIMEGLUMINE
     Dates: start: 20211026, end: 20211026
  67. CALCIUM GLUCONATE [Concomitant]
     Active Substance: CALCIUM GLUCONATE
     Indication: Nutritional supplementation
     Route: 042
     Dates: start: 20211129, end: 20211223
  68. CALCIUM GLUCONATE [Concomitant]
     Active Substance: CALCIUM GLUCONATE
     Route: 042
     Dates: start: 20211203, end: 20211223
  69. SODIUM GLYCEROPHOSPHATE [Concomitant]
     Active Substance: SODIUM GLYCEROPHOSPHATE
     Indication: Nutritional supplementation
     Route: 042
     Dates: start: 20211129, end: 20211223
  70. SODIUM GLYCEROPHOSPHATE [Concomitant]
     Active Substance: SODIUM GLYCEROPHOSPHATE
     Route: 042
     Dates: start: 20211203, end: 20211223
  71. SODIUM GLYCEROPHOSPHATE [Concomitant]
     Active Substance: SODIUM GLYCEROPHOSPHATE
     Route: 042
     Dates: start: 20211203, end: 20211203
  72. ITOPRIDE HYDROCHLORIDE [Concomitant]
     Active Substance: ITOPRIDE HYDROCHLORIDE
     Indication: Abdominal distension
     Dates: start: 20211020, end: 20211021
  73. COMPOUND AZINTAMIDE [Concomitant]
     Indication: Abdominal distension
     Dates: start: 20211020, end: 20211121
  74. TRAMADOL HYDROCHLORIDE [Concomitant]
     Active Substance: TRAMADOL HYDROCHLORIDE
     Dates: start: 20211027, end: 20211030
  75. MORPHINE HYDROCHLORIDE [Concomitant]
     Active Substance: MORPHINE HYDROCHLORIDE
     Indication: Pain
     Dates: start: 20211029, end: 20211029
  76. MORPHINE HYDROCHLORIDE [Concomitant]
     Active Substance: MORPHINE HYDROCHLORIDE
     Dates: start: 20211205, end: 20211205
  77. MORPHINE HYDROCHLORIDE [Concomitant]
     Active Substance: MORPHINE HYDROCHLORIDE
     Dates: start: 20211207, end: 20211207
  78. MORPHINE HYDROCHLORIDE [Concomitant]
     Active Substance: MORPHINE HYDROCHLORIDE
     Dates: start: 20211209, end: 20211209
  79. MORPHINE HYDROCHLORIDE [Concomitant]
     Active Substance: MORPHINE HYDROCHLORIDE
     Dates: start: 20211210, end: 20211210
  80. CEFOPERAZONE SODIUM\SULBACTAM SODIUM [Concomitant]
     Active Substance: CEFOPERAZONE SODIUM\SULBACTAM SODIUM
     Dates: start: 20211129, end: 20211213
  81. DYPHYLLINE [Concomitant]
     Active Substance: DYPHYLLINE
     Indication: Cough
     Dates: start: 20211130, end: 20211207
  82. AMBROXOL HYDROCHLORIDE [Concomitant]
     Active Substance: AMBROXOL HYDROCHLORIDE
     Indication: Cough
     Dates: start: 20211130, end: 20211207
  83. MULTI-OIL FAT EMULSION (UNK INGREDIENTS) [Concomitant]
     Indication: Nutritional supplementation
     Route: 042
     Dates: start: 20211203, end: 20211223
  84. MULTI-OIL FAT EMULSION (UNK INGREDIENTS) [Concomitant]
     Route: 042
     Dates: start: 20211121, end: 20211123
  85. MONTMORILLONITE [Concomitant]
     Active Substance: MONTMORILLONITE
     Dates: start: 20211213, end: 20211216
  86. SACCHAROMYCES CEREVISIAE [Concomitant]
     Active Substance: SACCHAROMYCES CEREVISIAE
     Dates: start: 20211213, end: 20211216
  87. TOLVAPTAN [Concomitant]
     Active Substance: TOLVAPTAN
     Indication: Hyponatraemia
     Dates: start: 20211214, end: 20211222
  88. ESCITALOPRAM OXALATE [Concomitant]
     Active Substance: ESCITALOPRAM OXALATE
     Indication: Anxiety
     Dates: start: 20211216, end: 20211224
  89. ROSA ROXBURGHII [Concomitant]
     Dates: start: 20211217, end: 20211224
  90. ACETYLCYSTEINE [Concomitant]
     Active Substance: ACETYLCYSTEINE
     Indication: Productive cough
     Dates: start: 20211222, end: 20211224
  91. ESOMEPRAZOLE SODIUM [Concomitant]
     Active Substance: ESOMEPRAZOLE SODIUM
     Dates: start: 20211129, end: 20211129
  92. HYDROMORPHONE HYDROCHLORIDE [Concomitant]
     Active Substance: HYDROMORPHONE HYDROCHLORIDE
     Indication: Analgesic therapy
     Dates: start: 20211202, end: 20211202
  93. HYDROMORPHONE HYDROCHLORIDE [Concomitant]
     Active Substance: HYDROMORPHONE HYDROCHLORIDE
     Dates: start: 20211204, end: 20211204
  94. HYDROMORPHONE HYDROCHLORIDE [Concomitant]
     Active Substance: HYDROMORPHONE HYDROCHLORIDE
     Dates: start: 20211205, end: 20211205
  95. MORPHINE HYDROCHLORIDE [Concomitant]
     Active Substance: MORPHINE HYDROCHLORIDE
     Indication: Analgesic therapy
     Dates: start: 20211205, end: 20211205
  96. MORPHINE HYDROCHLORIDE [Concomitant]
     Active Substance: MORPHINE HYDROCHLORIDE
     Dates: start: 20211207, end: 20211207
  97. MORPHINE HYDROCHLORIDE [Concomitant]
     Active Substance: MORPHINE HYDROCHLORIDE
     Dates: start: 20211209, end: 20211209
  98. MORPHINE HYDROCHLORIDE [Concomitant]
     Active Substance: MORPHINE HYDROCHLORIDE
     Dates: start: 20211210, end: 20211210
  99. PROMETHAZINE HYDROCHLORIDE [Concomitant]
     Active Substance: PROMETHAZINE HYDROCHLORIDE
     Dates: start: 20211217, end: 20211217
  100. FENTANYL [Concomitant]
     Active Substance: FENTANYL
     Indication: Analgesic therapy
     Dates: start: 20211210, end: 20211222
  101. VITAMINS [Concomitant]
     Active Substance: VITAMINS
     Dosage: 1 AMPULE
     Route: 042
     Dates: start: 20211121, end: 20211123
  102. VITAMINS [Concomitant]
     Active Substance: VITAMINS
     Dosage: 1 AMPULE
     Route: 042
     Dates: start: 20211116, end: 20211118
  103. VITAMINS [Concomitant]
     Active Substance: VITAMINS
     Dosage: 1 AMPULE
     Route: 042
     Dates: start: 20211129, end: 20211203
  104. VITAMINS [Concomitant]
     Active Substance: VITAMINS
     Dosage: 1 AMPULE
     Route: 042
     Dates: start: 20211203, end: 20211223
  105. GLYCERIN\LECITHIN\MEDIUM-CHAIN TRIGLYCERIDES\SOYBEAN OIL [Concomitant]
     Active Substance: GLYCERIN\LECITHIN\MEDIUM-CHAIN TRIGLYCERIDES\SOYBEAN OIL
     Route: 042
     Dates: start: 20211116, end: 20211116
  106. GLYCERIN\LECITHIN\MEDIUM-CHAIN TRIGLYCERIDES\SOYBEAN OIL [Concomitant]
     Active Substance: GLYCERIN\LECITHIN\MEDIUM-CHAIN TRIGLYCERIDES\SOYBEAN OIL
     Dates: start: 20211104, end: 20211106
  107. GLYCERIN\LECITHIN\MEDIUM-CHAIN TRIGLYCERIDES\SOYBEAN OIL [Concomitant]
     Active Substance: GLYCERIN\LECITHIN\MEDIUM-CHAIN TRIGLYCERIDES\SOYBEAN OIL
     Route: 042
     Dates: start: 20211206, end: 20211223
  108. AMINO ACIDS, SOURCE UNSPECIFIED [Concomitant]
     Active Substance: AMINO ACIDS, SOURCE UNSPECIFIED
     Route: 042
     Dates: start: 20211116, end: 20211116
  109. AMINO ACIDS, SOURCE UNSPECIFIED [Concomitant]
     Active Substance: AMINO ACIDS, SOURCE UNSPECIFIED
     Dates: start: 20211029, end: 20211106
  110. AMINO ACIDS, SOURCE UNSPECIFIED [Concomitant]
     Active Substance: AMINO ACIDS, SOURCE UNSPECIFIED
     Route: 042
     Dates: start: 20211129, end: 20211203
  111. AMINO ACIDS, SOURCE UNSPECIFIED [Concomitant]
     Active Substance: AMINO ACIDS, SOURCE UNSPECIFIED
     Route: 042
     Dates: start: 20211203, end: 20211223

REACTIONS (3)
  - General physical health deterioration [Not Recovered/Not Resolved]
  - Weight decreased [Not Recovered/Not Resolved]
  - Decreased appetite [Not Recovered/Not Resolved]

NARRATIVE: CASE EVENT DATE: 20211107
